FAERS Safety Report 25144698 (Version 1)
Quarter: 2025Q2

REPORT INFORMATION
  Report Type: Report from Study
  Country: FR (occurrence: FR)
  Receive Date: 20250401
  Receipt Date: 20250401
  Transmission Date: 20250716
  Serious: Yes (Hospitalization, Other)
  Sender: ABBVIE
  Company Number: FR-ABBVIE-6203744

PATIENT
  Age: 86 Year
  Sex: Male

DRUGS (1)
  1. FOSCARBIDOPA\FOSLEVODOPA [Suspect]
     Active Substance: FOSCARBIDOPA\FOSLEVODOPA
     Indication: Product used for unknown indication
     Route: 058
     Dates: start: 20250307

REACTIONS (4)
  - Respiratory arrest [Not Recovered/Not Resolved]
  - Loss of consciousness [Not Recovered/Not Resolved]
  - Blood sodium abnormal [Not Recovered/Not Resolved]
  - Coma scale abnormal [Not Recovered/Not Resolved]

NARRATIVE: CASE EVENT DATE: 20250326
